FAERS Safety Report 14757742 (Version 3)
Quarter: 2018Q4

REPORT INFORMATION
  Report Type: Spontaneous
  Country: GB (occurrence: GB)
  Receive Date: 20180413
  Receipt Date: 20181011
  Transmission Date: 20190204
  Serious: Yes (Death, Hospitalization, Other)
  Sender: FDA-Public Use
  Company Number: GB-SA-2018SA105187

PATIENT
  Age: 47 Year
  Sex: Female

DRUGS (17)
  1. ALEMTUZUMAB [Suspect]
     Active Substance: ALEMTUZUMAB
     Indication: BONE MARROW CONDITIONING REGIMEN
     Dosage: UNK UNK,UNK
     Route: 041
  2. VORICONAZOLE. [Suspect]
     Active Substance: VORICONAZOLE
     Indication: ANTIBIOTIC PROPHYLAXIS
     Dosage: 100 MG,QD
     Route: 065
  3. BASILIXIMAB [Suspect]
     Active Substance: BASILIXIMAB
     Indication: GRAFT VERSUS HOST DISEASE
  4. VORICONAZOLE. [Suspect]
     Active Substance: VORICONAZOLE
     Indication: CANDIDA SEPSIS
     Dosage: UNK UNK,UNK
     Route: 065
  5. AMPHOTERICINE B [Suspect]
     Active Substance: AMPHOTERICIN B
     Indication: INFECTION PROPHYLAXIS
     Dosage: 1 MG/KG,QD
     Route: 065
  6. AMPHOTERICINE B [Suspect]
     Active Substance: AMPHOTERICIN B
     Indication: CANDIDA INFECTION
     Dosage: 3 UNK
  7. VANCOMYCIN [Suspect]
     Active Substance: VANCOMYCIN
     Indication: PROPHYLAXIS
     Dosage: UNK UNK,UNK
     Route: 065
  8. TACROLIMUS. [Suspect]
     Active Substance: TACROLIMUS
     Indication: BONE MARROW CONDITIONING REGIMEN
     Dosage: UNK UNK,UNK
     Route: 065
  9. MICAFUNGIN. [Concomitant]
     Active Substance: MICAFUNGIN SODIUM
     Indication: INFECTION PROPHYLAXIS
     Dosage: 100 MG,QD
     Route: 065
  10. PREDNISOLONE. [Suspect]
     Active Substance: PREDNISOLONE
     Indication: BONE MARROW CONDITIONING REGIMEN
     Dosage: UNK UNK,UNK
     Route: 065
  11. MICAFUNGIN. [Concomitant]
     Active Substance: MICAFUNGIN SODIUM
     Indication: CANDIDA INFECTION
  12. METHYLPREDNISOLONE. [Suspect]
     Active Substance: METHYLPREDNISOLONE
     Indication: BONE MARROW CONDITIONING REGIMEN
     Dosage: UNK UNK,UNK
     Route: 065
  13. MEROPENEM. [Suspect]
     Active Substance: MEROPENEM
     Indication: PROPHYLAXIS
     Dosage: UNK UNK,UNK
     Route: 065
  14. ACICLOVIR [Suspect]
     Active Substance: ACYCLOVIR
     Indication: PROPHYLAXIS
     Dosage: UNK UNK,UNK
     Route: 065
  15. CYCLOSPORINE. [Suspect]
     Active Substance: CYCLOSPORINE
     Indication: BONE MARROW CONDITIONING REGIMEN
     Dosage: UNK UNK,UNK
     Route: 065
  16. SULFAMETHOXAZOLE/TRIMETHOPRIM [Suspect]
     Active Substance: SULFAMETHOXAZOLE\TRIMETHOPRIM
     Indication: PROPHYLAXIS
     Dosage: 480 MG,TIW
     Route: 065
  17. BASILIXIMAB [Suspect]
     Active Substance: BASILIXIMAB
     Indication: BONE MARROW CONDITIONING REGIMEN
     Dosage: UNK UNK,UNK
     Route: 065

REACTIONS (26)
  - Candida infection [Fatal]
  - Bone infarction [Fatal]
  - Dysarthria [Unknown]
  - Cerebral haemorrhage [Fatal]
  - Cardiac ventricular thrombosis [Fatal]
  - Bone marrow failure [Unknown]
  - Brain oedema [Fatal]
  - Drug level decreased [Unknown]
  - Pyrexia [Fatal]
  - Escherichia test positive [Fatal]
  - Intestinal infarction [Fatal]
  - Acute graft versus host disease [Not Recovered/Not Resolved]
  - Drug ineffective [Unknown]
  - Sepsis [Fatal]
  - Rash maculo-papular [Fatal]
  - Cerebral infarction [Fatal]
  - Mucormycosis [Fatal]
  - Staphylococcus test positive [Fatal]
  - Off label use [Unknown]
  - Drug interaction [Unknown]
  - Enterococcus test positive [Fatal]
  - Facial paralysis [Unknown]
  - Renal infarct [Fatal]
  - Hepatic infarction [Fatal]
  - Bacteraemia [Fatal]
  - Flavobacterium test positive [Fatal]
